FAERS Safety Report 4818993-7 (Version None)
Quarter: 2005Q4

REPORT INFORMATION
  Report Type: 
  Country: None (occurrence: None)
  Receive Date: 20051103
  Receipt Date: 20051025
  Transmission Date: 20060501
  Serious: Yes (Hospitalization)
  Sender: FDA-Public Use
  Company Number: US-AMGEN-US155878

PATIENT
  Age: 30 Year
  Sex: Female

DRUGS (10)
  1. PROCRIT [Suspect]
     Indication: PRE-EXISTING DISEASE
     Route: 058
     Dates: start: 20051001, end: 20051008
  2. INTERFERON [Concomitant]
  3. RIBAVIRIN [Concomitant]
  4. SEROQUEL [Concomitant]
  5. RISPERDAL [Concomitant]
  6. KLONOPIN [Concomitant]
  7. FLOVENT [Concomitant]
  8. ALBUTEROL [Concomitant]
  9. LIPITOR [Concomitant]
  10. PROVIGIL [Concomitant]

REACTIONS (1)
  - PULMONARY EMBOLISM [None]
